FAERS Safety Report 19236239 (Version 1)
Quarter: 2021Q2

REPORT INFORMATION
  Report Type: Spontaneous
  Country: US (occurrence: US)
  Receive Date: 20210510
  Receipt Date: 20210510
  Transmission Date: 20210717
  Serious: No
  Sender: FDA-Public Use
  Company Number: US-ORGANON-O2103USA001293

PATIENT
  Sex: Female

DRUGS (9)
  1. LEUPROLIDE ACE [Concomitant]
     Active Substance: LEUPROLIDE ACETATE
  2. ENDOMETRIN [Concomitant]
     Active Substance: PROGESTERONE
  3. FOLLISTIM AQ [Suspect]
     Active Substance: FOLLITROPIN
     Indication: INFERTILITY FEMALE
     Dosage: STRENGTH 900 IU/1.08 ML, DOSE 300 UNITS, QD
     Route: 058
     Dates: start: 20210223
  4. ESCITALOPRAM [Concomitant]
     Active Substance: ESCITALOPRAM OXALATE
  5. MENOPUR [Concomitant]
     Active Substance: FOLLITROPIN\LUTEINIZING HORMONE
  6. PREGNYL [Concomitant]
     Active Substance: CHORIOGONADOTROPIN ALFA
  7. GANIRELIX ACETATE INJECTION [Concomitant]
     Active Substance: GANIRELIX ACETATE
  8. ESTRADIOL. [Concomitant]
     Active Substance: ESTRADIOL
  9. STERILE WATER [Concomitant]
     Active Substance: WATER

REACTIONS (1)
  - Abdominal distension [Not Recovered/Not Resolved]

NARRATIVE: CASE EVENT DATE: 2021
